FAERS Safety Report 21475396 (Version 2)
Quarter: 2022Q4

REPORT INFORMATION
  Report Type: Spontaneous
  Country: US (occurrence: US)
  Receive Date: 20221019
  Receipt Date: 20221102
  Transmission Date: 20230112
  Serious: No
  Sender: FDA-Public Use
  Company Number: US-ABBVIE-4137393

PATIENT
  Sex: Male

DRUGS (2)
  1. VENCLEXTA [Suspect]
     Active Substance: VENETOCLAX
     Indication: Acute myeloid leukaemia
     Dosage: 2 TABLETS
     Route: 048
  2. DACOGEN [Concomitant]
     Active Substance: DECITABINE
     Indication: Product used for unknown indication

REACTIONS (1)
  - Off label use [Unknown]
